FAERS Safety Report 23396658 (Version 3)
Quarter: 2024Q1

REPORT INFORMATION
  Report Type: Report from Study
  Country: JP (occurrence: JP)
  Receive Date: 20240112
  Receipt Date: 20240219
  Transmission Date: 20240409
  Serious: Yes (Hospitalization, Other)
  Sender: FDA-Public Use
  Company Number: JP-TAKEDA-2023TJP017322

PATIENT
  Age: 68 Year
  Sex: Male
  Weight: 52.9 kg

DRUGS (3)
  1. CABOMETYX [Suspect]
     Active Substance: CABOZANTINIB S-MALATE
     Indication: Renal cell carcinoma stage IV
     Dosage: 60 MG, QD
     Route: 048
     Dates: start: 20230622, end: 20230705
  2. CABOMETYX [Suspect]
     Active Substance: CABOZANTINIB S-MALATE
     Dosage: 60 MG, QD
     Route: 048
     Dates: start: 20230831, end: 20230924
  3. CABOMETYX [Suspect]
     Active Substance: CABOZANTINIB S-MALATE
     Dosage: 40 MG, QD
     Route: 048
     Dates: start: 20231026, end: 20231109

REACTIONS (3)
  - Feeding disorder [Recovered/Resolved]
  - Hypothyroidism [Recovering/Resolving]
  - Subperiosteal abscess [Recovered/Resolved]

NARRATIVE: CASE EVENT DATE: 20230706
